FAERS Safety Report 7473419-2 (Version None)
Quarter: 2011Q1

REPORT INFORMATION
  Report Type: 
  Country: None (occurrence: None)
  Receive Date: 20110302
  Receipt Date: 20100701
  Transmission Date: 20110831
  Serious: Yes (Life-Threatening, Hospitalization)
  Sender: FDA-Public Use
  Company Number: 163-21880-10051157

PATIENT
  Age: 58 Year
  Sex: Male

DRUGS (17)
  1. REVLIMID [Suspect]
     Indication: MULTIPLE MYELOMA
     Dosage: 5 MG, 1 IN 1 D, PO
     Route: 048
     Dates: start: 20100212
  2. CLONIDINE [Concomitant]
  3. COMBIVENT [Concomitant]
  4. ZITHROMAX [Concomitant]
  5. MORPHINE [Concomitant]
  6. DILAUDID [Concomitant]
  7. MS CONTIN [Concomitant]
  8. PREDNISONE [Concomitant]
  9. CARVEDILOL [Concomitant]
  10. AMLODIPINE [Concomitant]
  11. ASPIRIN [Concomitant]
  12. FUROSEMIDE [Concomitant]
  13. LISINOPRIL [Concomitant]
  14. OXYCODONE HCL [Concomitant]
  15. OXYCODONE ACETAMINOPHEN (OXYCOCET) [Concomitant]
  16. DEXAMETHASONE [Concomitant]
  17. ZOMETA [Concomitant]

REACTIONS (4)
  - CHRONIC OBSTRUCTIVE PULMONARY DISEASE [None]
  - PNEUMONIA [None]
  - FLUID OVERLOAD [None]
  - ACUTE RESPIRATORY FAILURE [None]
